FAERS Safety Report 10086550 (Version 1)
Quarter: 2014Q2

REPORT INFORMATION
  Report Type: Spontaneous
  Country: JP (occurrence: JP)
  Receive Date: 20140418
  Receipt Date: 20140418
  Transmission Date: 20141212
  Serious: Yes (Life-Threatening)
  Sender: FDA-Public Use
  Company Number: JP-ABBVIE-14K-087-1226274-00

PATIENT
  Age: 77 Year
  Sex: Male
  Weight: 51 kg

DRUGS (8)
  1. ULTANE [Suspect]
     Indication: LUNG NEOPLASM
     Route: 055
     Dates: start: 20110817, end: 20110817
  2. AZELNIDIPINE [Concomitant]
     Indication: PRODUCT USED FOR UNKNOWN INDICATION
  3. MECOBALAMIN [Concomitant]
     Indication: PRODUCT USED FOR UNKNOWN INDICATION
  4. HOCHUEKKITO [Concomitant]
     Indication: PRODUCT USED FOR UNKNOWN INDICATION
  5. MINODRONIC ACID [Concomitant]
     Indication: PRODUCT USED FOR UNKNOWN INDICATION
  6. CHLORPHENESIN CARBAMATE [Concomitant]
     Indication: PRODUCT USED FOR UNKNOWN INDICATION
  7. DICLOFENAC SODIUM [Concomitant]
     Indication: PRODUCT USED FOR UNKNOWN INDICATION
  8. PROPOFOL [Concomitant]
     Indication: LUNG NEOPLASM
     Route: 042
     Dates: start: 20110817, end: 20110817

REACTIONS (1)
  - Tracheomalacia [Recovered/Resolved]
